FAERS Safety Report 9549918 (Version 1)
Quarter: 2013Q3

REPORT INFORMATION
  Report Type: Spontaneous
  Country: FR (occurrence: FR)
  Receive Date: 20130924
  Receipt Date: 20130924
  Transmission Date: 20140515
  Serious: Yes (Hospitalization)
  Sender: FDA-Public Use
  Company Number: FR-TEVA-431726ISR

PATIENT
  Sex: Female

DRUGS (1)
  1. BISOPROLOL TEVA 2.5 MG [Suspect]
     Route: 048
     Dates: start: 20130718, end: 20130821

REACTIONS (1)
  - Hypertensive crisis [Recovered/Resolved]
